FAERS Safety Report 4464537-1 (Version None)
Quarter: 2004Q3

REPORT INFORMATION
  Report Type: 
  Country: None (occurrence: None)
  Receive Date: 20040929
  Receipt Date: 20040920
  Transmission Date: 20050211
  Serious: Yes (Life-Threatening)
  Sender: FDA-Public Use
  Company Number: HQWYE125220SEP04

PATIENT
  Age: 30 Year
  Sex: Female

DRUGS (2)
  1. RHINADVIL (IBUPROFEN/ PSEUDOEPHEDRINE, TABLET) [Suspect]
     Dosage: 3 TABLET 1X PER 1 DAY, ORAL
     Route: 048
     Dates: start: 20040706, end: 20040711
  2. DERINOX (CETRIMONIUM BROMIDE/NAPHAZOLINE NITRATE/PHENYLEPHRINE HYDROCH [Concomitant]

REACTIONS (3)
  - DRUG EXPOSURE DURING PREGNANCY [None]
  - OLIGOHYDRAMNIOS [None]
  - SELF-MEDICATION [None]
